FAERS Safety Report 7846753-1 (Version None)
Quarter: 2011Q4

REPORT INFORMATION
  Report Type: 
  Country: None (occurrence: None)
  Receive Date: 20111025
  Receipt Date: 20111019
  Transmission Date: 20120403
  Serious: Yes (Hospitalization)
  Sender: FDA-Public Use
  Company Number: PHHY2011ES92245

PATIENT
  Age: 76 Year
  Sex: Male

DRUGS (7)
  1. OMEPRAZOLE [Concomitant]
     Dosage: UNK
     Dates: end: 20110619
  2. MIRTAZAPINE [Suspect]
     Indication: DEPRESSION
     Dosage: 30 MG, QD
     Route: 048
     Dates: start: 20110620, end: 20110627
  3. FAMVIR [Suspect]
     Indication: HERPES ZOSTER
     Dosage: UNK
     Route: 048
     Dates: start: 20110624
  4. INSULIN [Concomitant]
     Indication: DIABETES MELLITUS
  5. SINTROM [Concomitant]
     Indication: CEREBROVASCULAR ACCIDENT
  6. PLANTABEN [Concomitant]
  7. FLUOXETINE [Concomitant]
     Dosage: UNK
     Dates: end: 20110619

REACTIONS (2)
  - PNEUMONIA [None]
  - AGRANULOCYTOSIS [None]
